FAERS Safety Report 8798669 (Version 1)
Quarter: 2012Q4

REPORT INFORMATION
  Report Type: Spontaneous
  Country: US (occurrence: None)
  Receive Date: 20120917
  Receipt Date: 20120917
  Transmission Date: 20130627
  Serious: Yes (Other)
  Sender: FDA-Public Use
  Company Number: None

PATIENT
  Age: 49 Year
  Sex: Female
  Weight: 86.18 kg

DRUGS (1)
  1. BENGAY [Suspect]

REACTIONS (7)
  - Crying [None]
  - Application site pain [None]
  - Application site pain [None]
  - Application site vesicles [None]
  - Burns third degree [None]
  - Application site discolouration [None]
  - Application site discolouration [None]
